FAERS Safety Report 23851291 (Version 1)
Quarter: 2024Q2

REPORT INFORMATION
  Report Type: Other
  Country: AU (occurrence: None)
  Receive Date: 20240514
  Receipt Date: 20240514
  Transmission Date: 20240715
  Serious: Yes (Other)
  Sender: FDA-Public Use
  Company Number: AU-ROCHE-2777865

PATIENT
  Sex: Female

DRUGS (1)
  1. OCREVUS [Suspect]
     Active Substance: OCRELIZUMAB
     Indication: Relapsing-remitting multiple sclerosis
     Dosage: ON 20/FEB/2020, INFUSION 5, 18/FEB/2021 INFUSION 6,  22/JUL/2021 INFUSION 7, 16/DEC/2021 INFUSION 8
     Route: 041
     Dates: start: 20180118

REACTIONS (2)
  - Off label use [Unknown]
  - Infection [Not Recovered/Not Resolved]

NARRATIVE: CASE EVENT DATE: 20230101
